FAERS Safety Report 7171169-3 (Version None)
Quarter: 2010Q4

REPORT INFORMATION
  Report Type: 
  Country: None (occurrence: None)
  Receive Date: 20101123
  Receipt Date: 20100927
  Transmission Date: 20110411
  Serious: No
  Sender: FDA-Public Use
  Company Number: 019571

PATIENT
  Sex: Female

DRUGS (1)
  1. CIMZIA [Suspect]
     Indication: RHEUMATOID ARTHRITIS
     Dosage: 400 MG, 1X/28 DAYS SUBCUTANEOUS
     Route: 058
     Dates: start: 20100408

REACTIONS (3)
  - ARTHRALGIA [None]
  - PHARYNGITIS [None]
  - VOMITING [None]
